FAERS Safety Report 24408196 (Version 1)
Quarter: 2024Q4

REPORT INFORMATION
  Report Type: Spontaneous
  Country: CN (occurrence: CN)
  Receive Date: 20241007
  Receipt Date: 20241007
  Transmission Date: 20250115
  Serious: Yes (Hospitalization)
  Sender: PFIZER
  Company Number: CN-PFIZER INC-PV202400129121

PATIENT
  Age: 10 Year
  Sex: Female
  Weight: 27.5 kg

DRUGS (6)
  1. CYTARABINE [Suspect]
     Active Substance: CYTARABINE
     Indication: Non-Hodgkin^s lymphoma
     Dosage: 150 MG, 2X/DAY
     Route: 041
     Dates: start: 20240905, end: 20240909
  2. METHOTREXATE SODIUM [Suspect]
     Active Substance: METHOTREXATE SODIUM
     Indication: Non-Hodgkin^s lymphoma
     Dosage: 3 G, 1X/DAY
     Route: 041
     Dates: start: 20240909, end: 20240910
  3. ACTINOMYCIN D [Suspect]
     Active Substance: DACTINOMYCIN
     Indication: Non-Hodgkin^s lymphoma
     Dosage: UNK
     Dates: start: 20240910, end: 20240914
  4. DEXAMETHASONE [Suspect]
     Active Substance: DEXAMETHASONE
     Indication: Non-Hodgkin^s lymphoma
     Dosage: UNK
     Dates: start: 20240905, end: 20240909
  5. IFOSFAMIDE [Suspect]
     Active Substance: IFOSFAMIDE
     Indication: Non-Hodgkin^s lymphoma
     Dosage: 0.8 G, 1X/DAY
     Route: 041
     Dates: start: 20240909, end: 20240914
  6. VINCRISTINE SULFATE [Suspect]
     Active Substance: VINCRISTINE SULFATE
     Indication: Non-Hodgkin^s lymphoma
     Dosage: 1.5 MG, 1X/DAY
     Route: 041
     Dates: start: 20240910, end: 20240914

REACTIONS (2)
  - Myelosuppression [Recovering/Resolving]
  - Neutrophil percentage increased [Recovering/Resolving]

NARRATIVE: CASE EVENT DATE: 20240922
